FAERS Safety Report 20056607 (Version 2)
Quarter: 2021Q4

REPORT INFORMATION
  Report Type: Spontaneous
  Country: US (occurrence: US)
  Receive Date: 20211111
  Receipt Date: 20211111
  Transmission Date: 20220304
  Serious: Yes (Other)
  Sender: FDA-Public Use
  Company Number: US-SA-SAC20211109001172

PATIENT
  Sex: Female

DRUGS (2)
  1. LEFLUNOMIDE [Suspect]
     Active Substance: LEFLUNOMIDE
     Indication: Rheumatoid arthritis
     Dosage: SHE TOOK LEFLUNOMIDE FOR 3-4 MONTHS
  2. METHOTREXATE [Suspect]
     Active Substance: METHOTREXATE
     Indication: Rheumatoid arthritis
     Dosage: UNK

REACTIONS (5)
  - Rheumatoid arthritis [Not Recovered/Not Resolved]
  - Rash [Unknown]
  - Diarrhoea [Unknown]
  - Alopecia [Unknown]
  - Drug ineffective [Unknown]
